FAERS Safety Report 6070723-X (Version None)
Quarter: 2009Q1

REPORT INFORMATION
  Report Type: 
  Country: None (occurrence: None)
  Receive Date: 20090209
  Receipt Date: 20090128
  Transmission Date: 20090719
  Serious: Yes (Hospitalization, Other)
  Sender: FDA-Public Use
  Company Number: JP-ROCHE-610262

PATIENT
  Sex: Male
  Weight: 77 kg

DRUGS (1)
  1. TAMIFLU [Suspect]
     Indication: INFLUENZA
     Route: 048
     Dates: start: 20090101, end: 20090101

REACTIONS (4)
  - ACUTE HEPATIC FAILURE [None]
  - DUODENAL ULCER [None]
  - RENAL FAILURE ACUTE [None]
  - RHABDOMYOLYSIS [None]
